FAERS Safety Report 20809817 (Version 1)
Quarter: 2022Q2

REPORT INFORMATION
  Report Type: Spontaneous
  Country: RU (occurrence: RU)
  Receive Date: 20220510
  Receipt Date: 20220510
  Transmission Date: 20220721
  Serious: Yes (Other)
  Sender: FDA-Public Use
  Company Number: RU-NOVARTISPH-NVSC2022RU107091

PATIENT
  Age: 72 Year
  Sex: Male
  Weight: 96 kg

DRUGS (1)
  1. GLYCOPYRRONIUM\INDACATEROL [Suspect]
     Active Substance: GLYCOPYRRONIUM\INDACATEROL
     Indication: Asthma
     Dosage: 50/110 MCG
     Route: 055
     Dates: start: 20220225, end: 20220424

REACTIONS (3)
  - Dyspnoea [Recovering/Resolving]
  - Asphyxia [Recovering/Resolving]
  - Cough [Recovering/Resolving]

NARRATIVE: CASE EVENT DATE: 20220301
